FAERS Safety Report 25749130 (Version 1)
Quarter: 2025Q3

REPORT INFORMATION
  Report Type: Spontaneous
  Country: US (occurrence: US)
  Receive Date: 20250902
  Receipt Date: 20250902
  Transmission Date: 20251021
  Serious: Yes (Other)
  Sender: MERCK SHARP & DOHME LLC
  Company Number: US-009507513-2324423

PATIENT
  Age: 50 Year
  Sex: Female

DRUGS (2)
  1. KEYTRUDA [Suspect]
     Active Substance: PEMBROLIZUMAB
     Indication: Metastatic malignant melanoma
     Dosage: IV EVERY 3 WEEKS
     Route: 042
  2. KEYTRUDA [Suspect]
     Active Substance: PEMBROLIZUMAB
     Indication: Metastatic malignant melanoma
     Route: 058

REACTIONS (3)
  - Hepatitis [Recovered/Resolved]
  - Fatigue [Recovered/Resolved]
  - Arthralgia [Recovered/Resolved]
